FAERS Safety Report 22084517 (Version 1)
Quarter: 2023Q1

REPORT INFORMATION
  Report Type: Spontaneous
  Country: US (occurrence: None)
  Receive Date: 20230309
  Receipt Date: 20230309
  Transmission Date: 20230418
  Serious: Yes (Other)
  Sender: FDA-Public Use
  Company Number: None

PATIENT
  Age: 56 Year
  Sex: Female
  Weight: 49.5 kg

DRUGS (1)
  1. ZYRTEC-D ALLERGY AND CONGESTION [Suspect]
     Active Substance: CETIRIZINE HYDROCHLORIDE\PSEUDOEPHEDRINE HYDROCHLORIDE
     Indication: Multiple allergies
     Dosage: FREQUENCY : DAILY;?
     Route: 048
     Dates: start: 20230301, end: 20230305

REACTIONS (6)
  - Pruritus [None]
  - Crying [None]
  - Scab [None]
  - Scratch [None]
  - Urticaria [None]
  - Haemorrhage [None]

NARRATIVE: CASE EVENT DATE: 20230305
